FAERS Safety Report 9054554 (Version 4)
Quarter: 2013Q2

REPORT INFORMATION
  Report Type: Report from Study
  Country: DE (occurrence: DE)
  Receive Date: 20130208
  Receipt Date: 20130426
  Transmission Date: 20140414
  Serious: Yes (Hospitalization)
  Sender: FDA-Public Use
  Company Number: DE-VERTEX PHARMACEUTICALS INC.-2013-001417

PATIENT
  Age: 48 Year
  Sex: Male
  Weight: 68.5 kg

DRUGS (4)
  1. VX-950 (TELAPREVIR) [Suspect]
     Indication: HEPATITIS C
     Dosage: 2250 MG, QD
     Route: 048
     Dates: start: 20120105, end: 20120316
  2. RIBAVIRIN [Suspect]
     Indication: HEPATITIS C
     Dosage: DOSAGE FORM: UNSPECIFIED
     Route: 048
     Dates: start: 20111114, end: 20121211
  3. PEGINTERFERON ALFA [Suspect]
     Indication: HEPATITIS C
     Dosage: DOSAGE FORM: UNSPECIFIED
     Route: 058
     Dates: start: 20120105, end: 20121211
  4. AMOXICILLIN [Concomitant]
     Indication: PYREXIA
     Dosage: DOSAGE FORM: UNSPECIFIED
     Route: 048
     Dates: start: 20130101, end: 20130202

REACTIONS (4)
  - Ascites [Recovered/Resolved]
  - Peritonitis bacterial [Recovered/Resolved]
  - Pyrexia [Unknown]
  - Jaundice [Recovered/Resolved]
